FAERS Safety Report 9105833 (Version 1)
Quarter: 2013Q1

REPORT INFORMATION
  Report Type: Spontaneous
  Country: US (occurrence: US)
  Receive Date: 20130220
  Receipt Date: 20130220
  Transmission Date: 20140127
  Serious: No
  Sender: FDA-Public Use
  Company Number: US-PFIZER INC-2013060724

PATIENT
  Age: 70 Year
  Sex: Female
  Weight: 72.56 kg

DRUGS (3)
  1. ARTHROTEC [Suspect]
     Indication: OSTEOARTHRITIS
     Dosage: 50 MG, 2X/DAY
     Route: 048
     Dates: start: 201302, end: 201302
  2. ARTHROTEC [Suspect]
     Indication: RHEUMATOID ARTHRITIS
     Dosage: 50 MG, 1X/DAY
     Route: 048
     Dates: start: 201302, end: 201302
  3. PRAVASTATIN [Concomitant]
     Indication: BLOOD CHOLESTEROL INCREASED
     Dosage: UNK

REACTIONS (2)
  - Malaise [Recovering/Resolving]
  - Nausea [Recovering/Resolving]
